FAERS Safety Report 18646310 (Version 4)
Quarter: 2023Q2

REPORT INFORMATION
  Report Type: Spontaneous
  Country: US (occurrence: US)
  Receive Date: 20201222
  Receipt Date: 20230418
  Transmission Date: 20230722
  Serious: Yes (Other)
  Sender: FDA-Public Use
  Company Number: US-GILEAD-2020-0509313

PATIENT
  Sex: Male
  Weight: 77.098 kg

DRUGS (92)
  1. TRUVADA [Suspect]
     Active Substance: EMTRICITABINE\TENOFOVIR DISOPROXIL FUMARATE
     Indication: HIV infection
     Dosage: UNK
     Route: 048
     Dates: start: 2004
  2. TRUVADA [Suspect]
     Active Substance: EMTRICITABINE\TENOFOVIR DISOPROXIL FUMARATE
     Dosage: UNK
     Route: 048
     Dates: start: 2006, end: 2015
  3. TRUVADA [Suspect]
     Active Substance: EMTRICITABINE\TENOFOVIR DISOPROXIL FUMARATE
     Dosage: UNK
     Route: 048
     Dates: start: 2006, end: 2016
  4. COMBIVIR [Concomitant]
     Active Substance: LAMIVUDINE\ZIDOVUDINE
  5. EPIVIR [Concomitant]
     Active Substance: LAMIVUDINE
  6. NORVIR [Concomitant]
     Active Substance: RITONAVIR
  7. RETROVIR [Concomitant]
     Active Substance: ZIDOVUDINE
  8. REYATAZ [Concomitant]
     Active Substance: ATAZANAVIR SULFATE
  9. TIVICAY [Concomitant]
     Active Substance: DOLUTEGRAVIR SODIUM
  10. ACYCLOVIR [Concomitant]
     Active Substance: ACYCLOVIR
  11. ALBUTEROL [Concomitant]
     Active Substance: ALBUTEROL
  12. ALTEPLASE [Concomitant]
     Active Substance: ALTEPLASE
  13. AMOXICILLIN\CLAVULANIC ACID [Concomitant]
     Active Substance: AMOXICILLIN\CLAVULANIC ACID
  14. ATAZANAVIR [Concomitant]
     Active Substance: ATAZANAVIR
  15. AZITHROMYCIN [Concomitant]
     Active Substance: AZITHROMYCIN
  16. BENZONATATE [Concomitant]
     Active Substance: BENZONATATE
  17. CALCITRIOL [Concomitant]
     Active Substance: CALCITRIOL
  18. CEFEPIME [Concomitant]
     Active Substance: CEFEPIME HYDROCHLORIDE
  19. CEFTRIAXONE [Concomitant]
     Active Substance: CEFTRIAXONE
  20. CIPROFLOXACIN [Concomitant]
     Active Substance: CIPROFLOXACIN
  21. CLARITHROMYCIN [Concomitant]
     Active Substance: CLARITHROMYCIN
  22. CLINDAMYCIN [Concomitant]
     Active Substance: CLINDAMYCIN
  23. CLOTRIMAZOLE [Concomitant]
     Active Substance: CLOTRIMAZOLE
  24. CYCLOBENZAPRINE [Concomitant]
     Active Substance: CYCLOBENZAPRINE
  25. DAPSONE [Concomitant]
     Active Substance: DAPSONE
  26. DEXAMETHASONE [Concomitant]
     Active Substance: DEXAMETHASONE
  27. DEXTROMETHORPHAN [Concomitant]
     Active Substance: DEXTROMETHORPHAN
  28. DEXTROSE [Concomitant]
     Active Substance: DEXTROSE\DEXTROSE MONOHYDRATE
  29. DICLOFENAC [Concomitant]
     Active Substance: DICLOFENAC
  30. DIPHENHYDRAMINE [Concomitant]
     Active Substance: DIPHENHYDRAMINE
  31. DOCUSATE SODIUM [Concomitant]
     Active Substance: DOCUSATE SODIUM
  32. DOXYCYCLINE [Concomitant]
     Active Substance: DOXYCYCLINE
  33. EFAVIRENZ [Concomitant]
     Active Substance: EFAVIRENZ
  34. EMTRICITABINE\TENOFOVIR [Concomitant]
     Active Substance: EMTRICITABINE\TENOFOVIR
  35. EPOETIN ALFA [Concomitant]
     Active Substance: ERYTHROPOIETIN
  36. ERGOCALCIFEROL [Concomitant]
     Active Substance: ERGOCALCIFEROL
  37. ESOMEPRAZOLE [Concomitant]
     Active Substance: ESOMEPRAZOLE
  38. ETHAMBUTOL [Concomitant]
     Active Substance: ETHAMBUTOL HYDROCHLORIDE
  39. FLUCONAZOLE [Concomitant]
     Active Substance: FLUCONAZOLE
  40. FLUMAZENIL [Concomitant]
     Active Substance: FLUMAZENIL
  41. FOLIC ACID [Concomitant]
     Active Substance: FOLIC ACID
  42. FUROSEMIDE [Concomitant]
     Active Substance: FUROSEMIDE
  43. GUAIFENESIN [Concomitant]
     Active Substance: GUAIFENESIN
  44. HEPARIN SODIUM [Concomitant]
     Active Substance: HEPARIN SODIUM
  45. HYDROCHLOROTHIAZIDE [Concomitant]
     Active Substance: HYDROCHLOROTHIAZIDE
  46. IMIQUIMOD [Concomitant]
     Active Substance: IMIQUIMOD
  47. INSULIN ASPART [Concomitant]
     Active Substance: INSULIN ASPART
  48. INSULIN HUMAN [Concomitant]
     Active Substance: INSULIN HUMAN
  49. IPRATROPIUM [Concomitant]
     Active Substance: IPRATROPIUM
  50. ISONIAZID [Concomitant]
     Active Substance: ISONIAZID
  51. LAMIVUDINE [Concomitant]
     Active Substance: LAMIVUDINE
  52. LEVOFLOXACIN [Concomitant]
     Active Substance: LEVOFLOXACIN
  53. LIDOCAINE [Concomitant]
     Active Substance: LIDOCAINE
  54. LINEZOLID [Concomitant]
     Active Substance: LINEZOLID
  55. MAGNESIUM SULFATE [Concomitant]
     Active Substance: MAGNESIUM SULFATE
  56. MEGESTROL [Concomitant]
     Active Substance: MEGESTROL
  57. MELATONIN [Concomitant]
     Active Substance: MELATONIN
  58. MIDAZOLAM [Concomitant]
     Active Substance: MIDAZOLAM
  59. MUPIROCIN [Concomitant]
     Active Substance: MUPIROCIN
  60. NALOXONE [Concomitant]
     Active Substance: NALOXONE
  61. NICOTINE [Concomitant]
     Active Substance: NICOTINE
  62. NITROGLYCERIN [Concomitant]
     Active Substance: NITROGLYCERIN
  63. SODIUM CHLORIDE [Concomitant]
     Active Substance: SODIUM CHLORIDE
  64. ONDANSETRON [Concomitant]
     Active Substance: ONDANSETRON
  65. PHENYLEPHRINE [Concomitant]
     Active Substance: PHENYLEPHRINE HYDROCHLORIDE
  66. PIPERACILLIN [Concomitant]
     Active Substance: PIPERACILLIN
  67. POTASSIUM CHLORIDE [Concomitant]
     Active Substance: POTASSIUM CHLORIDE
  68. PREDNISONE [Concomitant]
     Active Substance: PREDNISONE
  69. PROMETHAZINE [Concomitant]
     Active Substance: PROMETHAZINE HYDROCHLORIDE
  70. PYRAZINAMIDE [Concomitant]
     Active Substance: PYRAZINAMIDE
  71. PYRIDOXINE [Concomitant]
     Active Substance: PYRIDOXINE
  72. RANITIDINE [Concomitant]
     Active Substance: RANITIDINE
  73. RIFABUTIN [Concomitant]
     Active Substance: RIFABUTIN
  74. RISPERIDONE [Concomitant]
     Active Substance: RISPERIDONE
  75. RITONAVIR [Concomitant]
     Active Substance: RITONAVIR
  76. ROSUVASTATIN [Concomitant]
     Active Substance: ROSUVASTATIN
  77. SENNA [Concomitant]
     Active Substance: SENNA LEAF\SENNOSIDES\SENNOSIDES A AND B
  78. SENNOSIDES [Concomitant]
     Active Substance: SENNOSIDES
  79. SERTRALINE [Concomitant]
     Active Substance: SERTRALINE HYDROCHLORIDE
  80. SULFAMETHOXAZOLE\TRIMETHOPRIM [Concomitant]
     Active Substance: SULFAMETHOXAZOLE\TRIMETHOPRIM
  81. SODIUM FERRIC GLUCONATE COMPLEX [Concomitant]
     Active Substance: SODIUM FERRIC GLUCONATE COMPLEX
  82. SODIUM POLYSTYRENE SULFONATE [Concomitant]
     Active Substance: SODIUM POLYSTYRENE SULFONATE
  83. SODIUM BICARBONATE [Concomitant]
     Active Substance: SODIUM BICARBONATE
  84. SODIUM CHLORIDE [Concomitant]
     Active Substance: SODIUM CHLORIDE
  85. SULFAMETHOXAZOLE [Concomitant]
     Active Substance: SULFAMETHOXAZOLE
  86. THIAMINE [Concomitant]
     Active Substance: THIAMINE
  87. TRIAMCINOLONE [Concomitant]
     Active Substance: TRIAMCINOLONE
  88. VANCOMYCIN [Concomitant]
     Active Substance: VANCOMYCIN
  89. WARFARIN SODIUM [Concomitant]
     Active Substance: WARFARIN SODIUM
  90. ZIDOVUDINE [Concomitant]
     Active Substance: ZIDOVUDINE
  91. TRAMADOL HCL [Concomitant]
     Active Substance: TRAMADOL HYDROCHLORIDE
  92. SULFAMETHOXAZOLE\TRIMETHOPRIM [Concomitant]
     Active Substance: SULFAMETHOXAZOLE\TRIMETHOPRIM

REACTIONS (11)
  - End stage renal disease [Not Recovered/Not Resolved]
  - Chronic kidney disease [Not Recovered/Not Resolved]
  - Renal impairment [Not Recovered/Not Resolved]
  - Renal failure [Unknown]
  - Emotional distress [Unknown]
  - Anhedonia [Unknown]
  - Anxiety [Unknown]
  - Pain [Unknown]
  - Hypertension [Not Recovered/Not Resolved]
  - Gait disturbance [Unknown]
  - Sleep disorder [Unknown]

NARRATIVE: CASE EVENT DATE: 20110101
